FAERS Safety Report 8227297-4 (Version None)
Quarter: 2012Q1

REPORT INFORMATION
  Report Type: 
  Country: None (occurrence: None)
  Receive Date: 20120322
  Receipt Date: 20120320
  Transmission Date: 20120608
  Serious: No
  Sender: FDA-Public Use
  Company Number: PHEH2011US009540

PATIENT
  Sex: Male

DRUGS (12)
  1. RAPAMUNE [Concomitant]
     Dosage: UNK UKN, UNK
  2. LASIX [Concomitant]
     Dosage: UNK UKN, UNK
  3. GEMFIBROZIL [Concomitant]
     Dosage: UNK UKN, UNK
  4. PREDNISONE TAB [Concomitant]
     Dosage: UNK UKN, UNK
  5. CLONIDINE HCL [Concomitant]
     Dosage: UNK UKN, UNK
  6. TASIGNA [Suspect]
     Indication: NEOPLASM MALIGNANT
     Dosage: 300 MG, BID
     Route: 048
     Dates: start: 20110901
  7. COREG [Concomitant]
     Dosage: UNK UKN, UNK
  8. MYCOPHENOLATE MOFETIL [Concomitant]
     Dosage: UNK UKN, UNK
  9. VALTREX [Concomitant]
     Dosage: UNK UKN, UNK
  10. LIPITOR [Concomitant]
     Dosage: UNK UKN, UNK
  11. SODIUM POTASSIUM TARTRATE [Concomitant]
     Dosage: UNK UKN, UNK
  12. LISINOPRIL [Concomitant]
     Dosage: UNK UKN, UNK

REACTIONS (2)
  - SINUSITIS [None]
  - ABDOMINAL PAIN UPPER [None]
